FAERS Safety Report 8889481 (Version 1)
Quarter: 2012Q4

REPORT INFORMATION
  Report Type: Spontaneous
  Country: JP (occurrence: None)
  Receive Date: 20121031
  Receipt Date: 20121031
  Transmission Date: 20130627
  Serious: Yes (Hospitalization)
  Sender: FDA-Public Use
  Company Number: IMP_06054_2012

PATIENT
  Age: 89 Year
  Sex: Male

DRUGS (8)
  1. METFORMIN (METFORMIN) [Suspect]
     Indication: DIABETES MELLITUS
  2. GLIMEPIRIDE [Concomitant]
  3. ASPIRIN [Concomitant]
  4. OMEPRAZOLE [Concomitant]
  5. ALLOPURINOIL [Concomitant]
  6. PRAVASTATIN SODIUM [Concomitant]
  7. NAFTOPIDIL [Concomitant]
  8. VALSARTAN [Concomitant]

REACTIONS (7)
  - Hypoglycaemia [None]
  - Hemiparesis [None]
  - Dysarthria [None]
  - Renal disorder [None]
  - Anaemia [None]
  - High density lipoprotein decreased [None]
  - Hyperkalaemia [None]
